FAERS Safety Report 20605688 (Version 1)
Quarter: 2022Q1

REPORT INFORMATION
  Report Type: Report from Study
  Country: JP (occurrence: JP)
  Receive Date: 20220317
  Receipt Date: 20220317
  Transmission Date: 20220424
  Serious: Yes (Death)
  Sender: FDA-Public Use
  Company Number: JP-ALNYLAM PHARMACEUTICALS, INC.-ALN-2022-000934

PATIENT

DRUGS (9)
  1. ONPATTRO [Suspect]
     Active Substance: PATISIRAN SODIUM
     Indication: Hereditary neuropathic amyloidosis
     Dosage: 19.5 MILLIGRAM
     Route: 041
     Dates: start: 20210714, end: 20210714
  2. ONPATTRO [Suspect]
     Active Substance: PATISIRAN SODIUM
     Dosage: 19.6 MILLIGRAM
     Route: 041
     Dates: start: 20210805, end: 20220117
  3. DEXAMETHASONE SODIUM PHOSPHATE [Concomitant]
     Active Substance: DEXAMETHASONE SODIUM PHOSPHATE
     Indication: Prophylaxis
     Dosage: 1 VIAL, SINGLE
     Route: 065
     Dates: start: 20210805
  4. DEXAMETHASONE SODIUM PHOSPHATE [Concomitant]
     Active Substance: DEXAMETHASONE SODIUM PHOSPHATE
     Indication: Prophylaxis
     Dosage: 2 AMPOULE, SINGLE
     Route: 065
     Dates: start: 20210805
  5. GASTER [Concomitant]
     Active Substance: FAMOTIDINE
     Indication: Prophylaxis
     Dosage: 1 AMPOULE, SINGLE
     Route: 065
     Dates: start: 20210805
  6. POLARAMINE [Concomitant]
     Active Substance: DEXCHLORPHENIRAMINE MALEATE
     Indication: Prophylaxis
     Dosage: 1 AMPOULE, SINGLE
     Route: 065
     Dates: start: 20210815
  7. CALONAL [Concomitant]
     Active Substance: ACETAMINOPHEN
     Indication: Prophylaxis
     Dosage: 1 DOSAGE FORM, SINGLE
     Route: 048
     Dates: start: 20210805
  8. METHYLCOBALAMIN [Concomitant]
     Active Substance: METHYLCOBALAMIN
     Indication: Neuropathy peripheral
     Dosage: 1 DOSAGE FORM, TID
     Route: 048
     Dates: start: 20210825
  9. TOCOPHERYL NICOTINATE, D-.ALPHA. [Concomitant]
     Active Substance: TOCOPHERYL NICOTINATE, D-.ALPHA.
     Indication: Neuropathy peripheral
     Dosage: 1 DOSAGE FORM, TID
     Route: 048
     Dates: start: 20210825

REACTIONS (1)
  - Pyrexia [Fatal]

NARRATIVE: CASE EVENT DATE: 20220201
